FAERS Safety Report 8304964-5 (Version None)
Quarter: 2012Q2

REPORT INFORMATION
  Report Type: 
  Country: None (occurrence: None)
  Receive Date: 20120423
  Receipt Date: 20120412
  Transmission Date: 20120825
  Serious: Yes (Other)
  Sender: FDA-Public Use
  Company Number: BR-ASTRAZENECA-2012SE24344

PATIENT
  Sex: Male

DRUGS (6)
  1. CILOSTASOL [Concomitant]
  2. ANALOPRIL [Concomitant]
  3. METOPROLOL TARTRATE [Suspect]
  4. BRILINTA [Suspect]
     Route: 048
     Dates: start: 20120101, end: 20120101
  5. ASPIRIN [Concomitant]
  6. SIMVASTATIN [Concomitant]

REACTIONS (3)
  - HAEMORRHOIDS [None]
  - RENAL FAILURE [None]
  - HAEMORRHAGE [None]
